FAERS Safety Report 25853245 (Version 1)
Quarter: 2025Q3

REPORT INFORMATION
  Report Type: Report from Study
  Country: CA (occurrence: CA)
  Receive Date: 20250926
  Receipt Date: 20250926
  Transmission Date: 20251020
  Serious: Yes (Hospitalization, Other)
  Sender: TAKEDA
  Company Number: CA-TAKEDA-2025TUS083543

PATIENT
  Age: 61 Year
  Sex: Male

DRUGS (14)
  1. VEDOLIZUMAB [Suspect]
     Active Substance: VEDOLIZUMAB
     Indication: Crohn^s disease
  2. VEDOLIZUMAB [Suspect]
     Active Substance: VEDOLIZUMAB
     Dosage: 300 MILLIGRAM, Q4WEEKS
     Dates: start: 20200109
  3. PREDNISONE [Concomitant]
     Active Substance: PREDNISONE
  4. PERINDOPRIL [Concomitant]
     Active Substance: PERINDOPRIL
  5. INDAPAMIDE [Concomitant]
     Active Substance: INDAPAMIDE
  6. ELIQUIS [Concomitant]
     Active Substance: APIXABAN
  7. PROPAFENONE [Concomitant]
     Active Substance: PROPAFENONE
     Indication: Cardiac fibrillation
  8. AMITRIPTYLINE [Concomitant]
     Active Substance: AMITRIPTYLINE
  9. PINAVERIUM BROMIDE [Concomitant]
     Active Substance: PINAVERIUM BROMIDE
  10. CHOLESTYRAMINE [Concomitant]
     Active Substance: CHOLESTYRAMINE
  11. VITAMIN D [Concomitant]
     Active Substance: VITAMIN D NOS
  12. CALCIUM [Concomitant]
     Active Substance: CALCIUM
  13. POTASSIUM [Concomitant]
     Active Substance: POTASSIUM
  14. XYLOCAINE [Concomitant]
     Active Substance: LIDOCAINE HYDROCHLORIDE
     Indication: Anorectal disorder

REACTIONS (1)
  - Cerebrovascular accident [Recovered/Resolved with Sequelae]

NARRATIVE: CASE EVENT DATE: 20250831
